FAERS Safety Report 8381768-9 (Version None)
Quarter: 2012Q2

REPORT INFORMATION
  Report Type: 
  Country: None (occurrence: None)
  Receive Date: 20120524
  Receipt Date: 20120511
  Transmission Date: 20120825
  Serious: Yes (Death, Life-Threatening, Other)
  Sender: FDA-Public Use
  Company Number: GB-RANBAXY-2012R1-55840

PATIENT
  Age: 47 Year
  Sex: Male

DRUGS (8)
  1. RAMIPRIL [Concomitant]
     Indication: PRODUCT USED FOR UNKNOWN INDICATION
     Dosage: UNK
     Route: 065
  2. GABAPENTIN [Suspect]
     Indication: NEURALGIA
     Dosage: UNK
     Route: 065
     Dates: start: 20110901, end: 20120401
  3. BENDROFLUMETHIAZIDE [Concomitant]
     Indication: HYPERTENSION
     Dosage: UNK
     Route: 065
  4. GABAPENTIN [Suspect]
     Indication: NECK PAIN
     Dosage: UNK
     Route: 065
     Dates: start: 20111001
  5. IBUPROFEN [Concomitant]
     Indication: PAIN
     Dosage: UNK
     Route: 065
  6. BISOPROLOL FUMARATE [Concomitant]
     Indication: PRODUCT USED FOR UNKNOWN INDICATION
     Dosage: UNK
     Route: 065
  7. LANSOPRAZOLE [Concomitant]
     Indication: PROPHYLAXIS
     Dosage: UNK
     Route: 065
  8. ACETAMINOPHEN [Concomitant]
     Indication: PAIN
     Dosage: UNK
     Route: 065

REACTIONS (7)
  - DEPRESSION [None]
  - ANXIETY [None]
  - SLEEP DISORDER [None]
  - SUICIDAL IDEATION [None]
  - CONDITION AGGRAVATED [None]
  - AMNESIA [None]
  - HOSTILITY [None]
